FAERS Safety Report 10986933 (Version 1)
Quarter: 2015Q1

REPORT INFORMATION
  Report Type: Spontaneous
  Country: US (occurrence: None)
  Receive Date: 20150304
  Receipt Date: 20150304
  Transmission Date: 20150721
  Serious: Yes (Other)
  Sender: FDA-Public Use
  Company Number: 2015-00454

PATIENT
  Sex: Male

DRUGS (1)
  1. CLONIDINE (WATSON LABORATORIES) (CLONIDINE) TRANSDERMAL PATCH, 0.3 MG [Suspect]
     Active Substance: CLONIDINE
     Indication: PRODUCT USED FOR UNKNOWN INDICATION
     Route: 062

REACTIONS (6)
  - Epistaxis [None]
  - Headache [None]
  - Blood pressure increased [None]
  - Peripheral coldness [None]
  - Chest pain [None]
  - Withdrawal hypertension [None]
